FAERS Safety Report 5514024-4 (Version None)
Quarter: 2007Q4

REPORT INFORMATION
  Report Type: 
  Country: None (occurrence: None)
  Receive Date: 20071106
  Receipt Date: 20070306
  Transmission Date: 20080405
  Serious: Yes (Other)
  Sender: FDA-Public Use
  Company Number: US-JNJFOC-20070301805

PATIENT
  Age: 62 Year
  Sex: Male

DRUGS (17)
  1. MOTRIN [Suspect]
     Indication: DRUG USE FOR UNKNOWN INDICATION
     Dosage: , 1 IN 1 TOTAL
  2. PROCARDIA XL [Suspect]
     Indication: DRUG USE FOR UNKNOWN INDICATION
  3. FOLATE                  (FOLATE SODIUM) [Concomitant]
  4. CLARINEX [Concomitant]
  5. LIPITOR [Concomitant]
  6. TOPROL-XL [Concomitant]
  7. VITAMIN B6 [Concomitant]
  8. VITAMIN B12 [Concomitant]
  9. PLAVIX [Concomitant]
  10. BABY ASPIRIN                     (ASPIRIN) UNKNOWN [Concomitant]
  11. PROPOXYPHENE HCL AND ACETAMINOPHEN [Concomitant]
  12. ISOSORBIDE MONONITRATE [Concomitant]
  13. FUROSEMIDE [Concomitant]
  14. LANTUS [Concomitant]
  15. TERAZOSIN HCL [Concomitant]
  16. ZETIA [Concomitant]
  17. INSULIN                    (INSULIN) [Concomitant]

REACTIONS (2)
  - ANGIOEDEMA [None]
  - HYPERSENSITIVITY [None]
